FAERS Safety Report 17445224 (Version 2)
Quarter: 2020Q3

REPORT INFORMATION
  Report Type: Spontaneous
  Country: US (occurrence: US)
  Receive Date: 20200221
  Receipt Date: 20200804
  Transmission Date: 20201102
  Serious: No
  Sender: FDA-Public Use
  Company Number: US-PFIZER INC-2020062750

PATIENT
  Age: 43 Year
  Sex: Female
  Weight: 108.84 kg

DRUGS (3)
  1. DIFLUNISAL. [Concomitant]
     Active Substance: DIFLUNISAL
     Dosage: UNK [500 X 2]
  2. LYRICA [Suspect]
     Active Substance: PREGABALIN
     Indication: FIBROMYALGIA
     Dosage: UNK [150 X 3]
     Dates: start: 201812, end: 20200205
  3. SULFASALAZINE. [Concomitant]
     Active Substance: SULFASALAZINE
     Dosage: UNK [1800 X 2]

REACTIONS (1)
  - Feeling of despair [Unknown]
